FAERS Safety Report 10231261 (Version 1)
Quarter: 2014Q2

REPORT INFORMATION
  Report Type: Spontaneous
  Country: US (occurrence: US)
  Receive Date: 20140611
  Receipt Date: 20140611
  Transmission Date: 20141212
  Serious: Yes (Hospitalization)
  Sender: FDA-Public Use
  Company Number: US-GLAXOSMITHKLINE-A1075808A

PATIENT
  Age: 83 Year
  Sex: Male

DRUGS (5)
  1. BREO ELLIPTA [Suspect]
     Indication: DYSPNOEA
     Dosage: 1PUFF PER DAY
     Route: 055
     Dates: start: 20140528, end: 20140528
  2. LOSARTAN [Concomitant]
  3. CRESTOR [Concomitant]
  4. AMLODIPINE BESYLATE [Concomitant]
  5. XANAX [Concomitant]

REACTIONS (9)
  - Restlessness [Recovered/Resolved]
  - Asthenia [Recovered/Resolved]
  - Anxiety [Recovered/Resolved]
  - Nausea [Recovered/Resolved]
  - Asthenia [Recovered/Resolved]
  - Speech disorder [Recovered/Resolved]
  - Fatigue [Recovered/Resolved]
  - Dyspnoea [Recovered/Resolved]
  - Discomfort [Recovered/Resolved]
